FAERS Safety Report 9097448 (Version 2)
Quarter: 2013Q1

REPORT INFORMATION
  Report Type: Spontaneous
  Country: US (occurrence: US)
  Receive Date: 20130212
  Receipt Date: 20130305
  Transmission Date: 20140127
  Serious: Yes (Hospitalization)
  Sender: FDA-Public Use
  Company Number: US-ELI_LILLY_AND_COMPANY-US201212000183

PATIENT
  Age: 66 None
  Sex: Female
  Weight: 91.61 kg

DRUGS (27)
  1. FORTEO [Suspect]
     Indication: OSTEOPOROSIS
     Dosage: 20 UG, QD
     Dates: start: 20121018
  2. FORTEO [Suspect]
     Dosage: 20 UG, QD
  3. OXYCONTIN [Concomitant]
     Indication: PAIN
     Dosage: UNK
  4. PROAIR HFA [Concomitant]
     Dosage: UNK, PRN
     Route: 055
  5. PROVENTIL                               /USA/ [Concomitant]
     Dosage: UNK, PRN
     Route: 055
  6. LIORESAL [Concomitant]
     Indication: MUSCLE SPASMS
     Dosage: 10 MG, PRN
     Route: 048
  7. CELEBREX [Concomitant]
     Indication: ARTHRITIS
     Dosage: 200 MG, BID
     Route: 048
  8. ZYRTEC [Concomitant]
     Dosage: 10 MG, QD
     Route: 048
  9. EVOXAC [Concomitant]
     Indication: DRY MOUTH
     Dosage: 30 MG, PRN
     Route: 048
  10. VITAMIN D3 [Concomitant]
     Indication: VITAMIN SUPPLEMENTATION
     Dosage: UNK, TID
     Route: 048
  11. VITAMIN B12 [Concomitant]
     Indication: VITAMIN B12 DEFICIENCY
     Dosage: 1000 UG, MONTHLY (1/M)
     Route: 030
  12. BENTYL [Concomitant]
     Indication: IRRITABLE BOWEL SYNDROME
     Dosage: 10 MG, TID
     Route: 048
  13. COLACE [Concomitant]
     Indication: CONSTIPATION
     Dosage: 100 MG, BID
     Route: 048
  14. CYMBALTA [Concomitant]
     Indication: DEPRESSION
     Dosage: 60 MG, BID
     Route: 048
  15. SPECTAZOLE [Concomitant]
     Indication: FUNGAL INFECTION
     Dosage: UNK, PRN
     Route: 061
  16. PEPCID [Concomitant]
     Dosage: 40 MG, PRN
     Route: 048
  17. FLONASE [Concomitant]
     Indication: RHINITIS ALLERGIC
     Dosage: 50 U, PRN
     Route: 045
  18. LASIX [Concomitant]
     Indication: OEDEMA
     Dosage: 40 MG, QD
     Route: 048
  19. CEPHULAC [Concomitant]
     Indication: CONSTIPATION
     Dosage: UNK, EACH MORNING
  20. SYNTHROID [Concomitant]
     Dosage: 100 UG, QD
     Route: 048
  21. MEVACOR [Concomitant]
     Indication: HYPERCHOLESTEROLAEMIA
     Dosage: 40 MG, QD
     Route: 048
  22. MS CONTIN [Concomitant]
     Indication: PAIN
     Dosage: 15 MG, PRN
     Route: 048
  23. THERAGRAN [Concomitant]
  24. ROXICODONE [Concomitant]
     Indication: PAIN
     Dosage: 5 MG, PRN
     Route: 048
  25. KLOR-CON [Concomitant]
     Indication: HYPOKALAEMIA
     Dosage: 10 MEQ, BID
     Route: 048
  26. DESYREL [Concomitant]
     Indication: MAJOR DEPRESSION
     Dosage: 100 MG, EACH EVENING
     Route: 048
  27. VERELAN [Concomitant]
     Dosage: 180 MG, EACH EVENING
     Route: 048

REACTIONS (3)
  - Transient ischaemic attack [Recovered/Resolved]
  - Pharyngitis [Unknown]
  - Urinary tract infection bacterial [Unknown]
